FAERS Safety Report 10250443 (Version 3)
Quarter: 2015Q2

REPORT INFORMATION
  Report Type: Spontaneous
  Country: US (occurrence: US)
  Receive Date: 20140620
  Receipt Date: 20150507
  Transmission Date: 20150821
  Serious: Yes (Death, Life-Threatening, Hospitalization, Other)
  Sender: FDA-Public Use
  Company Number: US-009507513-1406USA009623

PATIENT
  Sex: Male
  Weight: 92.97 kg

DRUGS (3)
  1. JANUVIA [Suspect]
     Active Substance: SITAGLIPTIN PHOSPHATE
     Indication: TYPE 2 DIABETES MELLITUS
     Dosage: 25 MG, QD
     Route: 048
     Dates: start: 20110622, end: 20130120
  2. JANUVIA [Suspect]
     Active Substance: SITAGLIPTIN PHOSPHATE
     Dosage: 50 MG, QD
     Route: 048
     Dates: start: 20110919, end: 20120312
  3. JANUVIA [Suspect]
     Active Substance: SITAGLIPTIN PHOSPHATE
     Dosage: 100 MG, QD
     Route: 048
     Dates: start: 20120112, end: 20130321

REACTIONS (14)
  - Metastases to liver [Unknown]
  - Myocardial infarction [Unknown]
  - Cardiac operation [Unknown]
  - Pulmonary granuloma [Unknown]
  - Stent placement [Unknown]
  - Gallbladder disorder [Unknown]
  - Diastasis recti abdominis [Unknown]
  - Gastrooesophageal reflux disease [Unknown]
  - Umbilical hernia [Unknown]
  - Central venous catheterisation [Unknown]
  - Ascites [Unknown]
  - Adenocarcinoma pancreas [Fatal]
  - Diverticulum intestinal [Unknown]
  - Pancreatic sphincterotomy [Unknown]

NARRATIVE: CASE EVENT DATE: 2012
